FAERS Safety Report 5998341-X (Version None)
Quarter: 2008Q4

REPORT INFORMATION
  Report Type: 
  Country: None (occurrence: None)
  Receive Date: 20081213
  Receipt Date: 20080702
  Transmission Date: 20090506
  Serious: No
  Sender: FDA-Public Use
  Company Number: US-AMGEN-KDL287075

PATIENT
  Sex: Female
  Weight: 115.3 kg

DRUGS (18)
  1. ENBREL [Suspect]
     Indication: RHEUMATOID ARTHRITIS
     Route: 058
     Dates: start: 20000101, end: 20080401
  2. METHOTREXATE [Concomitant]
     Route: 048
     Dates: start: 19820101
  3. ASPIRIN [Concomitant]
     Route: 048
  4. CHOLECALCIFEROL [Concomitant]
     Route: 048
  5. CLOTRIMAZOLE [Concomitant]
  6. ESTRATAB [Concomitant]
     Route: 048
  7. FAMOTIDINE [Concomitant]
  8. FLUTICASONE PROPIONATE [Concomitant]
  9. FOLIC ACID [Concomitant]
     Route: 048
  10. GLUCOSAMINE W/CHONDROITIN SULFATES [Concomitant]
  11. HYDROCHLOROTHIAZIDE [Concomitant]
  12. INFLIXIMAB [Concomitant]
     Route: 042
  13. ALBUTEROL [Concomitant]
  14. LEVOTHYROXINE SODIUM [Concomitant]
     Route: 048
  15. LOVASTATIN [Concomitant]
     Route: 048
  16. MULTI-VITAMINS [Concomitant]
     Route: 048
  17. NAPROXEN [Concomitant]
  18. VERAPAMIL [Concomitant]

REACTIONS (6)
  - ARTHRALGIA [None]
  - JOINT STIFFNESS [None]
  - MUSCULOSKELETAL PAIN [None]
  - PAIN IN EXTREMITY [None]
  - RASH PRURITIC [None]
  - RHEUMATOID ARTHRITIS [None]
